FAERS Safety Report 17210549 (Version 5)
Quarter: 2020Q1

REPORT INFORMATION
  Report Type: Spontaneous
  Country: CA (occurrence: CA)
  Receive Date: 20191227
  Receipt Date: 20200226
  Transmission Date: 20200409
  Serious: Yes (Hospitalization)
  Sender: FDA-Public Use
  Company Number: CA-ACTELION-A-NJ2019-199088

PATIENT
  Age: 55 Year
  Sex: Female

DRUGS (15)
  1. CALTRATE [Concomitant]
     Active Substance: CALCIUM CARBONATE
  2. OPSUMIT [Suspect]
     Active Substance: MACITENTAN
     Indication: PULMONARY ARTERIAL HYPERTENSION
     Dosage: 10 MG, QD
     Route: 048
     Dates: end: 20191202
  3. VITAMIN D3 [Concomitant]
     Active Substance: CHOLECALCIFEROL
  4. METOLAZONE. [Concomitant]
     Active Substance: METOLAZONE
  5. SPIRONOLACTONE. [Concomitant]
     Active Substance: SPIRONOLACTONE
  6. PANTOPRAZOLE [Concomitant]
     Active Substance: PANTOPRAZOLE
  7. SYMBICORT [Concomitant]
     Active Substance: BUDESONIDE\FORMOTEROL FUMARATE DIHYDRATE
  8. CARIPUL [Suspect]
     Active Substance: EPOPROSTENOL
     Indication: PULMONARY ARTERIAL HYPERTENSION
     Dosage: UNK
     Route: 042
     Dates: start: 20191026
  9. ADEMPAS [Concomitant]
     Active Substance: RIOCIGUAT
  10. SELINEXOR [Concomitant]
     Active Substance: SELINEXOR
  11. RISEDRONATE [Concomitant]
     Active Substance: RISEDRONATE SODIUM
  12. LASIX [Concomitant]
     Active Substance: FUROSEMIDE
  13. SPIRIVA [Concomitant]
     Active Substance: TIOTROPIUM BROMIDE MONOHYDRATE
  14. UPTRAVI [Suspect]
     Active Substance: SELEXIPAG
     Indication: PULMONARY ARTERIAL HYPERTENSION
     Dosage: 1600 MCG, BID
     Route: 048
     Dates: start: 20180212
  15. WARFARIN [Concomitant]
     Active Substance: WARFARIN

REACTIONS (6)
  - Acute kidney injury [Unknown]
  - Colostomy [Not Recovered/Not Resolved]
  - Therapy change [Unknown]
  - Abdominal distension [Not Recovered/Not Resolved]
  - Intestinal perforation [Not Recovered/Not Resolved]
  - Dialysis [Unknown]

NARRATIVE: CASE EVENT DATE: 201911
